FAERS Safety Report 5729240-6 (Version None)
Quarter: 2008Q2

REPORT INFORMATION
  Report Type: 
  Country: None (occurrence: None)
  Receive Date: 20080506
  Receipt Date: 20080501
  Transmission Date: 20081010
  Serious: Yes (Other)
  Sender: FDA-Public Use
  Company Number: IT-BRISTOL-MYERS SQUIBB COMPANY-14172829

PATIENT
  Age: 50 Year
  Sex: Female

DRUGS (2)
  1. CARBIDOPA AND LEVODOPA [Suspect]
     Indication: PARKINSON'S DISEASE
     Dosage: CARBIDOPA+LEVODOPA 50/200MG INITIALLY; AND LATER CARBIDOPA+LEVODOPA 25/100 MG WAS ADDED
  2. PERGOLIDE MESYLATE [Suspect]
     Indication: PARKINSON'S DISEASE
     Dosage: LATER 3.5 MG PER DAY WAS RESTARTED

REACTIONS (1)
  - BIPOLAR DISORDER [None]
